FAERS Safety Report 16890050 (Version 1)
Quarter: 2019Q4

REPORT INFORMATION
  Report Type: Spontaneous
  Country: US (occurrence: US)
  Receive Date: 20191007
  Receipt Date: 20191007
  Transmission Date: 20200122
  Serious: Yes (Life-Threatening, Hospitalization)
  Sender: FDA-Public Use
  Company Number: US-TEVA-2019-US-1118748

PATIENT
  Age: 75 Year
  Sex: Female

DRUGS (18)
  1. HYDROMORPHONE [Suspect]
     Active Substance: HYDROMORPHONE
     Dosage: INTRAOPERATIVELY RECEIVED A TOTAL OF 1MG DOSE
     Route: 065
  2. ROCURONIUM [Concomitant]
     Active Substance: ROCURONIUM BROMIDE
     Indication: GENERAL ANAESTHESIA
     Route: 065
  3. SEVOFLURANE. [Concomitant]
     Active Substance: SEVOFLURANE
     Indication: ANAESTHESIA
     Dosage: ET SEVOFLURANE WAS 1.9% AFTER RISE IN BLOOD PRESSURE POST DIRECT LARYNGOSCOPY AND SURGICAL INCISION
     Route: 065
  4. LABETALOL [Concomitant]
     Active Substance: LABETALOL\LABETALOL HYDROCHLORIDE
     Indication: BLOOD PRESSURE SYSTOLIC INCREASED
     Dosage: DIVIDED DOSES OF LABETALOL (90 MG) FOLLOWING INCREASED BP POST METHYLTHIONINIUM-CHLORIDE ADMINIST...
     Route: 065
  5. LABETALOL [Concomitant]
     Active Substance: LABETALOL\LABETALOL HYDROCHLORIDE
     Indication: BLOOD PRESSURE SYSTOLIC INCREASED
     Dosage: POSTOPERATIVELY AT SURGICAL INTENSIVE CARE UNIT FOR FURTHER MANAGEMENT OF HER BLOOD PRESSURE.
     Route: 065
  6. PROPOFOL. [Concomitant]
     Active Substance: PROPOFOL
     Indication: GENERAL ANAESTHESIA
     Dosage: 100 MG OF PROPOFOL IN 2 DIVIDED DOSES
     Route: 065
  7. METHYLENE BLUE. [Suspect]
     Active Substance: METHYLENE BLUE
     Indication: URETERAL DISORDER
     Route: 065
  8. FENTANYL. [Concomitant]
     Active Substance: FENTANYL
     Indication: GENERAL ANAESTHESIA
     Dosage: INITIALLY, AS GENERAL ANAESTHESIA
     Route: 065
  9. HYDRALAZINE [Concomitant]
     Active Substance: HYDRALAZINE HYDROCHLORIDE
     Indication: BLOOD PRESSURE SYSTOLIC INCREASED
     Dosage: AFTER RISE IN BLOOD PRESSURE POST DIRECT LARYNGOSCOPY AND SURGICAL INCISION; DURING HER 5-HOUR PO...
     Route: 065
  10. HYDROMORPHONE [Suspect]
     Active Substance: HYDROMORPHONE
     Route: 065
  11. HYDROMORPHONE [Suspect]
     Active Substance: HYDROMORPHONE
     Dosage: ON POSTOPERATIVE DAY 1
     Route: 065
  12. METOPROLOL. [Concomitant]
     Active Substance: METOPROLOL
     Route: 065
  13. FENTANYL. [Concomitant]
     Active Substance: FENTANYL
     Indication: GENERAL ANAESTHESIA
     Dosage: AFTER RISE IN BLOOD PRESSURE POST DIRECT LARYNGOSCOPY AND SURGICAL INCISION; DIVIDED DOSES OF FEN...
     Route: 065
  14. HYDRALAZINE [Concomitant]
     Active Substance: HYDRALAZINE HYDROCHLORIDE
     Indication: BLOOD PRESSURE SYSTOLIC INCREASED
     Dosage: FOLLOWING INCREASED BP POST METHYLTHIONINIUM-CHLORIDE ADMINISTRATION AND DURING 5-HOUR ANAESTHETI...
     Route: 065
  15. SEVOFLURANE. [Concomitant]
     Active Substance: SEVOFLURANE
     Indication: ANAESTHESIA
     Dosage: ET SEVOFLURANE 2.9% ; FOLLOWING INCREASED BP POST METHYLTHIONINIUM-CHLORIDE ADMINISTRATION
     Route: 065
  16. LABETALOL [Concomitant]
     Active Substance: LABETALOL\LABETALOL HYDROCHLORIDE
     Indication: BLOOD PRESSURE SYSTOLIC INCREASED
     Dosage: INITIALLY ONE DOSE; DURING HER 5-HOUR POSTANESTHETIC CARE UNIT STAY POST SURGERY AND POSTOPERATIV...
     Route: 065
  17. FENTANYL. [Concomitant]
     Active Substance: FENTANYL
     Indication: GENERAL ANAESTHESIA
     Dosage: RECEIVED 2 DOSES
     Route: 065
  18. SEVOFLURANE. [Concomitant]
     Active Substance: SEVOFLURANE
     Indication: ANAESTHESIA
     Dosage: INTRAOPERATIVE HEMODYNAMICS WAS STABLE ON 2% ET SEVOFLURANE
     Route: 065

REACTIONS (1)
  - Phaeochromocytoma crisis [Recovered/Resolved]
